FAERS Safety Report 4353591-3 (Version None)
Quarter: 2004Q2

REPORT INFORMATION
  Report Type: 
  Country: None (occurrence: None)
  Receive Date: 20040430
  Receipt Date: 20040421
  Transmission Date: 20050107
  Serious: Yes (Other)
  Sender: FDA-Public Use
  Company Number: 2004-03-0116

PATIENT
  Age: 83 Year
  Sex: Female
  Weight: 48.9885 kg

DRUGS (1)
  1. NITRO-DUR [Suspect]
     Dosage: TRANSDERMAL
     Route: 062
     Dates: start: 19940101

REACTIONS (2)
  - ANGIOPLASTY [None]
  - PHARMACEUTICAL PRODUCT COMPLAINT [None]
